FAERS Safety Report 4410963-6 (Version None)
Quarter: 2004Q3

REPORT INFORMATION
  Report Type: 
  Country: None (occurrence: None)
  Receive Date: 20040726
  Receipt Date: 20040713
  Transmission Date: 20050211
  Serious: Yes (Hospitalization)
  Sender: FDA-Public Use
  Company Number: US-SHR-03-018557

PATIENT
  Age: 52 Year
  Sex: Male
  Weight: 102 kg

DRUGS (1)
  1. ULTRAVIST 300 [Suspect]
     Indication: COMPUTERISED TOMOGRAM
     Dosage: SEE IMAGE, INTRAVENOUS
     Route: 042
     Dates: start: 20031210, end: 20031210

REACTIONS (4)
  - BLOOD PRESSURE DECREASED [None]
  - CARDIO-RESPIRATORY ARREST [None]
  - EAR PRURITUS [None]
  - PHARYNGEAL OEDEMA [None]
